FAERS Safety Report 6147422-9 (Version None)
Quarter: 2009Q2

REPORT INFORMATION
  Report Type: 
  Country: None (occurrence: None)
  Receive Date: 20090406
  Receipt Date: 20090325
  Transmission Date: 20091009
  Serious: Yes (Other)
  Sender: FDA-Public Use
  Company Number: 2009-01160

PATIENT
  Age: 63 Year
  Sex: Male

DRUGS (2)
  1. VELCADE [Suspect]
     Indication: MULTIPLE MYELOMA
  2. LENALIDOMIDE(CODEINIE, PARACETAMOL) [Suspect]
     Indication: MULTIPLE MYELOMA
     Dosage: 15 MG, ORAL
     Route: 048
     Dates: start: 20090201

REACTIONS (8)
  - BACK PAIN [None]
  - CONSTIPATION [None]
  - DECREASED APPETITE [None]
  - HAEMOGLOBIN DECREASED [None]
  - HYPOGEUSIA [None]
  - NAUSEA [None]
  - RED BLOOD CELL COUNT DECREASED [None]
  - WEIGHT DECREASED [None]
